FAERS Safety Report 8721201 (Version 2)
Quarter: 2013Q4

REPORT INFORMATION
  Report Type: Spontaneous
  Country: US (occurrence: US)
  Receive Date: 20120813
  Receipt Date: 20131101
  Transmission Date: 20140711
  Serious: No
  Sender: FDA-Public Use
  Company Number: US-009507513-2012SP035016

PATIENT
  Sex: Male

DRUGS (1)
  1. COPPERTONE [Suspect]
     Indication: PRODUCT USED FOR UNKNOWN INDICATION
     Dosage: UNK UNK, UNKNOWN
     Route: 061
     Dates: start: 20120521

REACTIONS (2)
  - Eye irritation [Unknown]
  - Hypersensitivity [Not Recovered/Not Resolved]
